FAERS Safety Report 7471306-7 (Version None)
Quarter: 2011Q2

REPORT INFORMATION
  Report Type: 
  Country: None (occurrence: None)
  Receive Date: 20110510
  Receipt Date: 20110502
  Transmission Date: 20111010
  Serious: Yes (Hospitalization)
  Sender: FDA-Public Use
  Company Number: NL-ABBOTT-11P-114-0723237-00

PATIENT
  Sex: Male

DRUGS (6)
  1. AZATHIOPRINE [Concomitant]
     Indication: PRODUCT USED FOR UNKNOWN INDICATION
     Dates: end: 20110429
  2. HYDROCORTISONE [Concomitant]
     Indication: ECZEMA
     Dates: end: 19980101
  3. BUDENOFALK [Concomitant]
     Dates: start: 20110420
  4. HUMIRA [Suspect]
     Indication: CROHN'S DISEASE
     Route: 058
     Dates: start: 20101230, end: 20110404
  5. IMURAN [Concomitant]
     Indication: CROHN'S DISEASE
     Dates: start: 20100610
  6. BUDENOFALK [Concomitant]
     Indication: PRODUCT USED FOR UNKNOWN INDICATION
     Dates: start: 20110406, end: 20110420

REACTIONS (1)
  - CROHN'S DISEASE [None]
